FAERS Safety Report 7109681-5 (Version None)
Quarter: 2010Q4

REPORT INFORMATION
  Report Type: 
  Country: None (occurrence: None)
  Receive Date: 20101115
  Receipt Date: 20101115
  Transmission Date: 20110411
  Serious: Yes (Hospitalization)
  Sender: FDA-Public Use
  Company Number: None

PATIENT
  Sex: Female
  Weight: 119.5 kg

DRUGS (2)
  1. DOXORUBICIN HCL [Suspect]
     Dosage: 145 MG
     Dates: end: 20070126
  2. CYCLOPHOSPHAMIDE [Suspect]
     Dosage: 1430 MG
     Dates: end: 20070126

REACTIONS (3)
  - ACUTE MONOCYTIC LEUKAEMIA [None]
  - KARYOTYPE ANALYSIS ABNORMAL [None]
  - STEM CELL TRANSPLANT [None]
